FAERS Safety Report 9120475 (Version 2)
Quarter: 2016Q2

REPORT INFORMATION
  Report Type: Report from Study
  Country: US (occurrence: US)
  Receive Date: 20130226
  Receipt Date: 20160429
  Transmission Date: 20160815
  Serious: Yes (Other)
  Sender: FDA-Public Use
  Company Number: US-ROCHE-1172301

PATIENT
  Sex: Female
  Weight: 97 kg

DRUGS (3)
  1. XOLAIR [Suspect]
     Active Substance: OMALIZUMAB
     Indication: ASTHMA
     Route: 058
  2. SPIRIVA [Concomitant]
     Active Substance: TIOTROPIUM BROMIDE MONOHYDRATE
  3. VERAMYST [Concomitant]
     Active Substance: FLUTICASONE FUROATE

REACTIONS (3)
  - Pregnancy [Unknown]
  - Sinusitis [Unknown]
  - Drug ineffective [Unknown]
